FAERS Safety Report 8966620 (Version 1)
Quarter: 2012Q4

REPORT INFORMATION
  Report Type: 
  Country: JP (occurrence: JP)
  Receive Date: 20121214
  Receipt Date: 20121214
  Transmission Date: 20130627
  Serious: Yes (Other)
  Sender: FDA-Public Use
  Company Number: JP-ASTRAZENECA-2012SE92202

PATIENT
  Age: 80 Year
  Sex: Male
  Weight: 55 kg

DRUGS (8)
  1. DIPRIVAN [Suspect]
     Indication: MAINTENANCE OF ANAESTHESIA
     Dosage: As required
     Route: 042
  2. MIDAZOLAM [Concomitant]
     Indication: INDUCTION OF ANAESTHESIA
     Dosage: Dose unknown
     Route: 042
  3. REMIFENTANIL HYDROCHLORIDE [Concomitant]
     Indication: INDUCTION AND MAINTENANCE OF ANAESTHESIA
     Dosage: Dose unknown
     Route: 042
  4. ROCURONIUM BROMIDE [Concomitant]
     Indication: INDUCTION AND MAINTENANCE OF ANAESTHESIA
     Dosage: Dose unknown
     Route: 042
  5. SEVOFLURANE [Concomitant]
     Indication: MAINTENANCE OF ANAESTHESIA
     Dosage: Dose unknown
     Route: 055
  6. FENTANYL [Concomitant]
     Indication: MAINTENANCE OF ANAESTHESIA
     Dosage: Dose unknown
     Route: 042
  7. DOPAMINE [Concomitant]
     Dosage: 3 mcg/kg/min
     Route: 065
  8. NITROGLYCERIN [Concomitant]
     Dosage: 0.5 mcg/kg/min
     Route: 065

REACTIONS (4)
  - Anaphylactic shock [Recovered/Resolved]
  - Disorientation [Not Recovered/Not Resolved]
  - Cognitive disorder [Not Recovered/Not Resolved]
  - Delirium [Not Recovered/Not Resolved]
